FAERS Safety Report 9475969 (Version 2)
Quarter: 2013Q4

REPORT INFORMATION
  Report Type: Spontaneous
  Country: BR (occurrence: BR)
  Receive Date: 20130826
  Receipt Date: 20131219
  Transmission Date: 20140711
  Serious: Yes (Other)
  Sender: FDA-Public Use
  Company Number: BR-PFIZER INC-2013244879

PATIENT
  Age: 67 Year
  Sex: Female

DRUGS (1)
  1. LYRICA [Suspect]
     Dosage: 75 MG, 2X/DAY (EVERY 12 HOURS), CONTINUOUS TREATMENT
     Route: 048
     Dates: start: 20130801

REACTIONS (1)
  - Terminal state [Not Recovered/Not Resolved]
